FAERS Safety Report 7347047-3 (Version None)
Quarter: 2011Q1

REPORT INFORMATION
  Report Type: 
  Country: None (occurrence: None)
  Receive Date: 20110309
  Receipt Date: 20110309
  Transmission Date: 20110831
  Serious: Yes (Life-Threatening, Hospitalization, Disabling, Other)
  Sender: FDA-Public Use
  Company Number: None

PATIENT
  Age: 47 Year
  Sex: Male
  Weight: 104.3273 kg

DRUGS (1)
  1. TRIAD ALCOHOL WIPE TRIAD GROUP [Suspect]
     Indication: DRUG THERAPY
     Dates: start: 20100315, end: 20110211

REACTIONS (6)
  - PRODUCT CONTAMINATION [None]
  - INFECTION [None]
  - INFLUENZA LIKE ILLNESS [None]
  - RECTAL ABSCESS [None]
  - PNEUMONIA [None]
  - BLOOD POTASSIUM DECREASED [None]
